FAERS Safety Report 4636333-3 (Version None)
Quarter: 2005Q2

REPORT INFORMATION
  Report Type: 
  Country: None (occurrence: None)
  Receive Date: 20050415
  Receipt Date: 20041104
  Transmission Date: 20051028
  Serious: Yes (Other)
  Sender: FDA-Public Use
  Company Number: US-BRISTOL-MYERS SQUIBB COMPANY-12755914

PATIENT
  Age: 53 Year
  Sex: Male

DRUGS (6)
  1. PARAPLATIN [Suspect]
     Indication: BLADDER CANCER
     Route: 042
  2. TAXOL [Concomitant]
  3. TOPROL-XL [Concomitant]
  4. ZOLOFT [Concomitant]
  5. GEMFIBROZIL [Concomitant]
  6. COMBIVENT [Concomitant]

REACTIONS (1)
  - HYPERSENSITIVITY [None]
